FAERS Safety Report 7738136-X (Version None)
Quarter: 2011Q3

REPORT INFORMATION
  Report Type: 
  Country: None (occurrence: None)
  Receive Date: 20110908
  Receipt Date: 20110901
  Transmission Date: 20111222
  Serious: Yes (Other)
  Sender: FDA-Public Use
  Company Number: US-ELI_LILLY_AND_COMPANY-US201109001640

PATIENT
  Sex: Male

DRUGS (3)
  1. ASPIRIN [Concomitant]
     Dosage: UNK, UNKNOWN
     Route: 065
  2. METOPROLOL TARTRATE [Concomitant]
     Dosage: 12.5 MG, BID
     Route: 065
  3. EFFIENT [Suspect]
     Indication: STENT PLACEMENT
     Dosage: 10 MG, QD
     Dates: start: 20100910

REACTIONS (7)
  - VOMITING [None]
  - BLEEDING TIME PROLONGED [None]
  - INTERVERTEBRAL DISC INJURY [None]
  - HAEMORRHAGE [None]
  - PAIN IN EXTREMITY [None]
  - CONTUSION [None]
  - TINNITUS [None]
